FAERS Safety Report 11394066 (Version 6)
Quarter: 2016Q2

REPORT INFORMATION
  Report Type: Report from Study
  Country: FR (occurrence: FR)
  Receive Date: 20150819
  Receipt Date: 20160413
  Transmission Date: 20160815
  Serious: Yes (Life-Threatening, Hospitalization)
  Sender: FDA-Public Use
  Company Number: FR-ROCHE-1618132

PATIENT
  Age: 74 Year
  Sex: Female

DRUGS (11)
  1. RANIBIZUMAB [Suspect]
     Active Substance: RANIBIZUMAB
     Dosage: LEFT EYE
     Route: 050
     Dates: start: 20150326
  2. AMAREL [Concomitant]
     Active Substance: GLIMEPIRIDE
  3. VICTOZA [Concomitant]
     Active Substance: LIRAGLUTIDE
  4. COUMADINE [Concomitant]
     Active Substance: WARFARIN SODIUM
  5. TENORMIN [Concomitant]
     Active Substance: ATENOLOL
  6. APROVEL [Concomitant]
     Active Substance: IRBESARTAN
  7. RANIBIZUMAB [Suspect]
     Active Substance: RANIBIZUMAB
     Dosage: LEFT EYE
     Route: 050
     Dates: start: 20150427
  8. INEXIUM [Concomitant]
     Active Substance: ESOMEPRAZOLE
  9. RANIBIZUMAB [Suspect]
     Active Substance: RANIBIZUMAB
     Dosage: LAST DOSE PRIOR TO SAE ON 28/MAY/2015?LEFT EYE
     Route: 050
     Dates: start: 20150528
  10. RANIBIZUMAB [Suspect]
     Active Substance: RANIBIZUMAB
     Indication: DIABETIC RETINAL OEDEMA
     Dosage: LEFT EYE
     Route: 050
     Dates: start: 20150226
  11. ZYLORIC [Concomitant]
     Active Substance: ALLOPURINOL

REACTIONS (8)
  - Bronchitis [Unknown]
  - Cerebrovascular accident [Unknown]
  - Renal artery occlusion [Recovered/Resolved]
  - Hypertensive crisis [Unknown]
  - Osteoarthritis [Unknown]
  - Posterior reversible encephalopathy syndrome [Recovered/Resolved]
  - Brain oedema [Unknown]
  - Vision blurred [Unknown]

NARRATIVE: CASE EVENT DATE: 201506
